FAERS Safety Report 8574122-8 (Version None)
Quarter: 2012Q3

REPORT INFORMATION
  Report Type: 
  Country: None (occurrence: None)
  Receive Date: 20120806
  Receipt Date: 20120802
  Transmission Date: 20120928
  Serious: Yes (Hospitalization)
  Sender: FDA-Public Use
  Company Number: PHHO2012DE011024

PATIENT
  Sex: Male

DRUGS (5)
  1. RAMIPRIL [Concomitant]
     Indication: HYPERTENSION
     Dosage: 7.5 MG, QD
     Route: 048
     Dates: start: 20120101
  2. TRILEPTAL [Concomitant]
     Indication: EPILEPSY
     Dosage: 300 MG, TID
     Route: 048
     Dates: start: 20040101
  3. TASIGNA [Suspect]
     Indication: CHRONIC MYELOID LEUKAEMIA
     Dosage: 600 MG, BID
     Route: 048
     Dates: start: 20120602
  4. HYDROCHLOROTHIAZDE TAB [Concomitant]
     Indication: HYPERTENSION
     Dosage: 12.5 MG, QD
     Route: 048
     Dates: start: 20120101
  5. NICOTINE [Suspect]

REACTIONS (1)
  - ACUTE CORONARY SYNDROME [None]
